FAERS Safety Report 19157836 (Version 2)
Quarter: 2021Q2

REPORT INFORMATION
  Report Type: Spontaneous
  Country: JP (occurrence: JP)
  Receive Date: 20210420
  Receipt Date: 20210505
  Transmission Date: 20210717
  Serious: Yes (Other)
  Sender: FDA-Public Use
  Company Number: JP-PFIZER INC-2021383583

PATIENT
  Age: 25 Year
  Sex: Female

DRUGS (3)
  1. DOXORUBICIN HCL [Suspect]
     Active Substance: DOXORUBICIN HYDROCHLORIDE
     Indication: OSTEOSARCOMA
     Dosage: 30 MG/M2, DAILY (PER 24 HOURS DAY 1 AND DAY 2 CYCLIC)
  2. CISPLATIN. [Suspect]
     Active Substance: CISPLATIN
     Indication: OSTEOSARCOMA
     Dosage: 100 MG/M2, CYCLIC (PER 5 HOURS DAY 1)
  3. CISPLATIN. [Suspect]
     Active Substance: CISPLATIN
     Dosage: 60 MG/M2, CYCLIC

REACTIONS (3)
  - Nausea [Recovered/Resolved]
  - Tinnitus [Unknown]
  - Ototoxicity [Not Recovered/Not Resolved]
